FAERS Safety Report 5220009-8 (Version None)
Quarter: 2006Q4

REPORT INFORMATION
  Report Type: 
  Country: None (occurrence: None)
  Receive Date: 20061201
  Receipt Date: 20060719
  Transmission Date: 20070319
  Serious: No
  Sender: FDA-Public Use
  Company Number: 2006PV017871

PATIENT
  Age: 61 Year
  Sex: Female
  Weight: 104.3273 kg

DRUGS (9)
  1. BYETTA [Suspect]
     Indication: DIABETES MELLITUS NON-INSULIN-DEPENDENT
     Dosage: 5 MCG;BID;SC
     Route: 058
     Dates: start: 20060711
  2. PRILOSEC [Concomitant]
  3. AMARYL [Concomitant]
  4. TENORETIC 100 [Concomitant]
  5. COZAAR [Concomitant]
  6. AMITRIPTYLINE HCL [Concomitant]
  7. K-DUR 10 [Concomitant]
  8. NAPROSYN [Concomitant]
  9. LEVOTHYROXINE SODIUM [Concomitant]

REACTIONS (4)
  - CONDITION AGGRAVATED [None]
  - DIZZINESS [None]
  - HAEMATOCHEZIA [None]
  - NAUSEA [None]
